FAERS Safety Report 7775903-0 (Version None)
Quarter: 2011Q3

REPORT INFORMATION
  Report Type: 
  Country: None (occurrence: None)
  Receive Date: 20110923
  Receipt Date: 20110913
  Transmission Date: 20111222
  Serious: Yes (Hospitalization, Other)
  Sender: FDA-Public Use
  Company Number: DE-GENENTECH-322632

PATIENT
  Sex: Female

DRUGS (1)
  1. LUCENTIS [Suspect]
     Indication: MACULAR DEGENERATION
     Dosage: UNK UNK, UNKNOWN
     Route: 031
     Dates: start: 20070101

REACTIONS (6)
  - RETINAL DETACHMENT [None]
  - VISUAL ACUITY REDUCED [None]
  - EYE PAIN [None]
  - ENDOPHTHALMITIS [None]
  - EYE INFECTION [None]
  - VISUAL IMPAIRMENT [None]
